FAERS Safety Report 6386509-2 (Version None)
Quarter: 2009Q4

REPORT INFORMATION
  Report Type: 
  Country: None (occurrence: None)
  Receive Date: 20091002
  Receipt Date: 20090602
  Transmission Date: 20100525
  Serious: Yes (Other)
  Sender: FDA-Public Use
  Company Number: US-ASTRAZENECA-2009UW14048

PATIENT
  Age: 70 Year
  Sex: Female
  Weight: 61.7 kg

DRUGS (6)
  1. ARIMIDEX [Suspect]
     Indication: BREAST CANCER FEMALE
     Route: 048
     Dates: start: 20070101
  2. HYDROCHLOROTHIAZIDE [Concomitant]
     Indication: HYPERTENSION
  3. BENICAR [Concomitant]
     Indication: HYPERTENSION
  4. VITAMINS [Concomitant]
  5. SUPPLEMENTS [Concomitant]
  6. HOMEOPATHIC IMMUNOSUPPRESENTS [Concomitant]

REACTIONS (1)
  - BONE PAIN [None]
